FAERS Safety Report 19009423 (Version 2)
Quarter: 2021Q4

REPORT INFORMATION
  Report Type: Spontaneous
  Country: JP (occurrence: JP)
  Receive Date: 20210316
  Receipt Date: 20211208
  Transmission Date: 20220303
  Serious: Yes (Hospitalization, Other)
  Sender: FDA-Public Use
  Company Number: JP-BAYER-2021-034557

PATIENT
  Age: 23 Year
  Sex: Female
  Weight: 45 kg

DRUGS (4)
  1. YAZ [Suspect]
     Active Substance: DROSPIRENONE\ETHINYL ESTRADIOL
     Indication: Endometriosis
     Dosage: 1 DF, QD
     Dates: start: 202006, end: 20210121
  2. YAZ [Suspect]
     Active Substance: DROSPIRENONE\ETHINYL ESTRADIOL
     Indication: Dysmenorrhoea
  3. YAZ [Suspect]
     Active Substance: DROSPIRENONE\ETHINYL ESTRADIOL
     Indication: Premenstrual syndrome
  4. CALONAL [Concomitant]
     Active Substance: ACETAMINOPHEN
     Indication: Analgesic intervention supportive therapy
     Dosage: 20MG PER DOSE, 2 DF

REACTIONS (16)
  - Cerebellar infarction [Recovered/Resolved]
  - Vertebral artery dissection [Recovering/Resolving]
  - Vertebral artery stenosis [None]
  - Renal impairment [None]
  - Contusion [None]
  - Hepatic function abnormal [None]
  - Coagulopathy [None]
  - Vertigo [Recovered/Resolved]
  - Vomiting [Recovered/Resolved]
  - Nystagmus [Recovering/Resolving]
  - Ataxia [Recovering/Resolving]
  - Headache [Recovering/Resolving]
  - Presyncope [Recovering/Resolving]
  - Loss of consciousness [Recovering/Resolving]
  - Dizziness [Recovering/Resolving]
  - Joint hyperextension [None]

NARRATIVE: CASE EVENT DATE: 20201128
